FAERS Safety Report 11743513 (Version 1)
Quarter: 2015Q4

REPORT INFORMATION
  Report Type: Other
  Country: CA (occurrence: CA)
  Receive Date: 20151116
  Receipt Date: 20151116
  Transmission Date: 20160304
  Serious: Yes (Death)
  Sender: FDA-Public Use
  Company Number: CA-APOTEX-2015AP014282

PATIENT

DRUGS (1)
  1. APO-CLOPIDOGREL [Suspect]
     Active Substance: CLOPIDOGREL BISULFATE
     Indication: ISCHAEMIC STROKE
     Dosage: 75 MG, QD
     Route: 048

REACTIONS (2)
  - Haemorrhagic stroke [Fatal]
  - Haemorrhage intracranial [Fatal]
